FAERS Safety Report 8005353-3 (Version None)
Quarter: 2011Q4

REPORT INFORMATION
  Report Type: 
  Country: None (occurrence: None)
  Receive Date: 20111223
  Receipt Date: 20111220
  Transmission Date: 20120403
  Serious: Yes (Other)
  Sender: FDA-Public Use
  Company Number: BR-PFIZER INC-2011309569

PATIENT
  Age: 66 Year
  Sex: Female

DRUGS (2)
  1. ATORVASTATIN CALCIUM [Suspect]
     Indication: BLOOD CHOLESTEROL
     Dosage: 10 MG, 1X/DAY (1 TABLET)
     Route: 048
     Dates: start: 20111201
  2. ALDACTONE [Suspect]
     Indication: BLOOD CHOLESTEROL
     Dosage: 25 MG, 1X/DAY (1 TABLET)
     Route: 048
     Dates: start: 20040101

REACTIONS (1)
  - BONE NEOPLASM MALIGNANT [None]
